FAERS Safety Report 12494233 (Version 1)
Quarter: 2016Q2

REPORT INFORMATION
  Report Type: Spontaneous
  Country: CA (occurrence: CA)
  Receive Date: 20160623
  Receipt Date: 20160623
  Transmission Date: 20160815
  Serious: Yes (Other)
  Sender: FDA-Public Use
  Company Number: CA-GILEAD-2016-0219698

PATIENT
  Age: 53 Year
  Sex: Male

DRUGS (7)
  1. RIBAVIRIN. [Concomitant]
     Active Substance: RIBAVIRIN
     Dosage: 400 UNK, UNK
     Route: 065
     Dates: start: 201406, end: 201408
  2. SOVALDI [Suspect]
     Active Substance: SOFOSBUVIR
     Dosage: 400 UNK, UNK
     Route: 065
     Dates: start: 201501, end: 201504
  3. RIBAVIRIN. [Concomitant]
     Active Substance: RIBAVIRIN
     Indication: HEPATITIS C
     Dosage: 200 MG, QOD
     Route: 065
     Dates: start: 201405, end: 201406
  4. RIBAVIRIN. [Concomitant]
     Active Substance: RIBAVIRIN
     Dosage: 600 MG, BID
     Route: 065
     Dates: start: 201501, end: 201504
  5. SOVALDI [Suspect]
     Active Substance: SOFOSBUVIR
     Indication: HEPATITIS C
     Dosage: 400 MG, QD
     Route: 065
     Dates: start: 201405, end: 201411
  6. RIBAVIRIN. [Concomitant]
     Active Substance: RIBAVIRIN
     Dosage: 200 MG, QD
     Route: 065
     Dates: start: 201408, end: 201411
  7. RIBAVIRIN. [Concomitant]
     Active Substance: RIBAVIRIN
     Dosage: 200 MG, BID
     Route: 065
     Dates: start: 201411, end: 201411

REACTIONS (3)
  - Hepatitis C [Recovered/Resolved]
  - Drug ineffective [Unknown]
  - Renal failure [Recovering/Resolving]

NARRATIVE: CASE EVENT DATE: 201412
